FAERS Safety Report 6019453-0 (Version None)
Quarter: 2008Q4

REPORT INFORMATION
  Report Type: 
  Country: None (occurrence: None)
  Receive Date: 20081224
  Receipt Date: 20081218
  Transmission Date: 20090506
  Serious: Yes (Hospitalization)
  Sender: FDA-Public Use
  Company Number: CH-ELI_LILLY_AND_COMPANY-CH200812004812

PATIENT
  Age: 83 Year
  Sex: Male

DRUGS (11)
  1. FLUOXETINE [Suspect]
     Dosage: 20 MG, DAILY (1/D)
     Route: 048
     Dates: start: 20081024, end: 20081104
  2. DEPAKENE [Concomitant]
     Indication: EPILEPSY
     Dosage: 300 MG, 2/D
     Route: 048
     Dates: end: 20081030
  3. RIMACTANE [Concomitant]
     Dosage: 600 MG, DAILY (1/D)
     Route: 048
     Dates: start: 20081025, end: 20081103
  4. NEXIUM [Concomitant]
     Dosage: 20 MG, DAILY (1/D)
     Route: 048
  5. COVERSUM [Concomitant]
     Dosage: 2 MG, DAILY (1/D)
     Route: 048
  6. POTASSIUM CHLORIDE [Concomitant]
     Dosage: 30 MMOL, 3/D
     Route: 042
  7. SODIUM CHLORIDE 0.9% [Concomitant]
     Dosage: 0.9 %, UNK
     Route: 042
  8. TORSEMIDE [Concomitant]
     Dosage: 20 MG, DAILY (1/D)
     Route: 048
  9. NITRODERM [Concomitant]
     Dosage: 10 MG, DAILY (1/D)
     Route: 062
  10. CLEXANE [Concomitant]
     Dosage: 40 MG, DAILY (1/D)
     Route: 058
  11. CIPROFLOXACIN HCL [Concomitant]
     Dosage: 500 MG, 2/D
     Route: 048

REACTIONS (6)
  - DEPRESSED LEVEL OF CONSCIOUSNESS [None]
  - DISEASE PROGRESSION [None]
  - DRUG INTERACTION [None]
  - GENERAL PHYSICAL HEALTH DETERIORATION [None]
  - MUSCLE RIGIDITY [None]
  - SOMNOLENCE [None]
